FAERS Safety Report 4983431-0 (Version None)
Quarter: 2006Q2

REPORT INFORMATION
  Report Type: 
  Country: None (occurrence: None)
  Receive Date: 20060426
  Receipt Date: 20060317
  Transmission Date: 20061013
  Serious: Yes (Death, Other)
  Sender: FDA-Public Use
  Company Number: US-MERCK-0603USA03211

PATIENT
  Age: 49 Year
  Sex: Male
  Weight: 97 kg

DRUGS (2)
  1. VIOXX [Suspect]
     Indication: PAIN MANAGEMENT
     Route: 048
     Dates: start: 20020512, end: 20040403
  2. VIOXX [Suspect]
     Route: 048
     Dates: start: 20020512, end: 20040403

REACTIONS (4)
  - ANXIETY [None]
  - DEATH [None]
  - DEPRESSION [None]
  - MYOCARDIAL INFARCTION [None]
